FAERS Safety Report 7991729-7 (Version None)
Quarter: 2011Q4

REPORT INFORMATION
  Report Type: 
  Country: None (occurrence: None)
  Receive Date: 20111219
  Receipt Date: 20111215
  Transmission Date: 20120403
  Serious: Yes (Death, Hospitalization)
  Sender: FDA-Public Use
  Company Number: BR-ABBOTT-11P-020-0884019-00

PATIENT
  Sex: Female

DRUGS (2)
  1. MODURETIC 5-50 [Concomitant]
     Indication: HYPERTENSION
     Route: 048
  2. HUMIRA [Suspect]
     Indication: RHEUMATOID ARTHRITIS
     Route: 058
     Dates: start: 20110701

REACTIONS (10)
  - MYOCARDIAL INFARCTION [None]
  - HEPATITIS C [None]
  - DIABETES MELLITUS [None]
  - RENAL FAILURE ACUTE [None]
  - ARTHRITIS [None]
  - COUGH [None]
  - PULMONARY EMBOLISM [None]
  - BLOOD POTASSIUM DECREASED [None]
  - PAIN [None]
  - BLOOD SODIUM DECREASED [None]
